FAERS Safety Report 4295259-8 (Version None)
Quarter: 2004Q1

REPORT INFORMATION
  Report Type: 
  Country: None (occurrence: None)
  Receive Date: 20040216
  Receipt Date: 20030502
  Transmission Date: 20041129
  Serious: No
  Sender: FDA-Public Use
  Company Number: US-GLAXOSMITHKLINE-A0407072A

PATIENT
  Age: 43 Year
  Sex: Female

DRUGS (1)
  1. LAMICTAL [Suspect]
     Dosage: 100MGM UNKNOWN
     Route: 048
     Dates: start: 20030414

REACTIONS (1)
  - SINUSITIS [None]
